FAERS Safety Report 5154415-7 (Version None)
Quarter: 2006Q4

REPORT INFORMATION
  Report Type: 
  Country: None (occurrence: None)
  Receive Date: 20061114
  Receipt Date: 20061026
  Transmission Date: 20070319
  Serious: Yes (Disabling)
  Sender: FDA-Public Use
  Company Number: 226594

PATIENT
  Age: 27 Year
  Sex: Female
  Weight: 60 kg

DRUGS (1)
  1. AVASTIN [Suspect]
     Indication: COLORECTAL CANCER
     Dosage: 7.5 MG/KG, SUBCUTANEOUS
     Route: 058
     Dates: start: 20051115, end: 20060215

REACTIONS (2)
  - PARANEOPLASTIC SYNDROME [None]
  - SACROILIITIS [None]
